FAERS Safety Report 6295777-7 (Version None)
Quarter: 2009Q3

REPORT INFORMATION
  Report Type: 
  Country: None (occurrence: None)
  Receive Date: 20090804
  Receipt Date: 20090724
  Transmission Date: 20100115
  Serious: Yes (Hospitalization)
  Sender: FDA-Public Use
  Company Number: FR-PFIZER INC-2009245365

PATIENT
  Age: 81 Year

DRUGS (10)
  1. ATARAX [Suspect]
     Indication: ANXIETY
     Dosage: 25 MG, 2X/DAY
     Route: 048
     Dates: start: 20090201, end: 20090517
  2. ATARAX [Suspect]
     Dosage: 25 MG, UNK
     Route: 048
     Dates: start: 20090518
  3. KARDEGIC [Suspect]
     Indication: THROMBOSIS PROPHYLAXIS
     Dosage: 75 MG, 1X/DAY
     Route: 048
     Dates: start: 20090118
  4. PLAVIX [Suspect]
     Indication: THROMBOSIS PROPHYLAXIS
     Dosage: 75 MG, 1X/DAY
     Route: 048
     Dates: start: 20090118
  5. ACEBUTOLOL [Suspect]
     Dosage: 100 MG, 2X/DAY
     Route: 048
     Dates: start: 20090118, end: 20090619
  6. LEVOTHYROX [Suspect]
     Indication: HYPOTHYROIDISM
     Dosage: 87.5 MG, 1X/DAY
     Route: 048
  7. COVERSYL [Suspect]
     Dosage: 2 MG, 1X/DAY
     Route: 048
     Dates: start: 20090118
  8. CACIT D3 [Suspect]
     Indication: VITAMIN D DEFICIENCY
     Dosage: 1 SACHET DAILY
     Route: 048
     Dates: start: 20090201
  9. NEXIUM [Concomitant]
     Dosage: UNK
     Dates: start: 20090118, end: 20090518
  10. TAHOR [Concomitant]
     Dosage: UNK
     Dates: start: 20090118, end: 20090518

REACTIONS (1)
  - TOXIC SKIN ERUPTION [None]
